FAERS Safety Report 4732559-9 (Version None)
Quarter: 2005Q3

REPORT INFORMATION
  Report Type: 
  Country: None (occurrence: None)
  Receive Date: 20050801
  Receipt Date: 20050720
  Transmission Date: 20060218
  Serious: Yes (Other)
  Sender: FDA-Public Use
  Company Number: 2005105182

PATIENT
  Sex: Female
  Weight: 67.1324 kg

DRUGS (4)
  1. ZOLOFT [Suspect]
     Indication: VULVOVAGINAL DISCOMFORT
     Dosage: 50 MG(50 MG, 1 IN 1 D)
  2. ULTRAM (TRAMADOL HYDROCHLORIDE0 [Concomitant]
  3. TYLENOL [Concomitant]
  4. ATIVAN [Concomitant]

REACTIONS (9)
  - BREAST CANCER FEMALE [None]
  - DIZZINESS [None]
  - HANGOVER [None]
  - HEADACHE [None]
  - HYPERSOMNIA [None]
  - MALAISE [None]
  - NAUSEA [None]
  - ORAL INTAKE REDUCED [None]
  - VIRAL INFECTION [None]
